FAERS Safety Report 5323940-8 (Version None)
Quarter: 2007Q2

REPORT INFORMATION
  Report Type: 
  Country: None (occurrence: None)
  Receive Date: 20070514
  Receipt Date: 20070503
  Transmission Date: 20071010
  Serious: Yes (Hospitalization)
  Sender: FDA-Public Use
  Company Number: US-ROCHE-496001

PATIENT
  Age: 49 Year
  Sex: Male
  Weight: 78 kg

DRUGS (22)
  1. PEG-INTERFERON ALFA 2A (RO 25-8310) [Suspect]
     Indication: HEPATITIS C
     Route: 058
     Dates: start: 20070301, end: 20070419
  2. RIBAVIRIN [Suspect]
     Indication: HEPATITIS C
     Route: 048
     Dates: start: 20070301, end: 20070419
  3. VX-950 [Suspect]
     Indication: HEPATITIS C
     Route: 048
     Dates: start: 20070301, end: 20070419
  4. APIDRA [Concomitant]
     Route: 058
     Dates: start: 20060115
  5. LEVEMIR [Concomitant]
     Dosage: 40 UNITS EVERY MORNING, 30 UNITS EVERY EVENING.
     Route: 058
     Dates: start: 20060115
  6. WELLBUTRIN [Concomitant]
     Indication: DEPRESSION
     Route: 048
     Dates: start: 20050801
  7. ZETIA [Concomitant]
     Indication: DEPRESSION
     Route: 048
     Dates: start: 20060128
  8. PROTONIX [Concomitant]
     Route: 048
     Dates: start: 20061020
  9. PAROXETINE [Concomitant]
     Indication: DEPRESSION
     Route: 048
     Dates: start: 20050801
  10. HYDROCODONE BITARTRATE [Concomitant]
     Indication: BACK PAIN
     Dosage: 5/500 MG TABLET AS NEEDED. REPORTED AS HYDROCODONE/APAP (PROCET/USA)
     Route: 048
     Dates: start: 20061229
  11. ETODOLAC [Concomitant]
     Indication: INFLAMMATION
     Route: 048
     Dates: start: 20061229
  12. FUROSEMIDE [Concomitant]
     Route: 048
     Dates: start: 20060504
  13. KLOR-CON [Concomitant]
     Route: 048
     Dates: start: 20060504
  14. TRAZODONE HCL [Concomitant]
     Indication: INSOMNIA
     Route: 048
     Dates: start: 20060827
  15. TEMAZEPAM [Concomitant]
     Indication: INSOMNIA
     Route: 048
     Dates: start: 20060218
  16. TYLENOL [Concomitant]
     Indication: MYALGIA
     Route: 048
     Dates: start: 20040402
  17. ADVIL [Concomitant]
     Indication: HEADACHE
     Route: 048
     Dates: start: 20040402
  18. VIAGRA [Concomitant]
     Indication: ERECTILE DYSFUNCTION
     Route: 048
  19. CIALIS [Concomitant]
     Indication: ERECTILE DYSFUNCTION
     Route: 048
  20. APEXICON [Concomitant]
     Indication: DERMATITIS
     Route: 061
     Dates: start: 20050106
  21. GLUCOSE [Concomitant]
     Route: 048
  22. JANUVIA [Concomitant]
     Route: 048
     Dates: start: 20070213

REACTIONS (1)
  - CHOLECYSTITIS INFECTIVE [None]
